FAERS Safety Report 15194258 (Version 1)
Quarter: 2018Q3

REPORT INFORMATION
  Report Type: Spontaneous
  Country: US (occurrence: US)
  Receive Date: 20180725
  Receipt Date: 20180725
  Transmission Date: 20181010
  Serious: No
  Sender: FDA-Public Use
  Company Number: US-ASTRAZENECA-2018SE83739

PATIENT
  Sex: Female
  Weight: 68.9 kg

DRUGS (1)
  1. SYMBICORT [Suspect]
     Active Substance: BUDESONIDE\FORMOTEROL FUMARATE DIHYDRATE
     Indication: ASTHMA
     Dosage: 80/4.5 MCG, TWO INHALATIONS ONCE A DAY UNKNOWN
     Route: 055

REACTIONS (6)
  - Device issue [Unknown]
  - Fatigue [Unknown]
  - Headache [Unknown]
  - Incorrect dose administered [Unknown]
  - Asthenia [Unknown]
  - Memory impairment [Unknown]
